FAERS Safety Report 10480690 (Version 1)
Quarter: 2014Q3

REPORT INFORMATION
  Report Type: Spontaneous
  Country: US (occurrence: None)
  Receive Date: 20140904
  Receipt Date: 20140904
  Transmission Date: 20150326
  Serious: No
  Sender: FDA-Public Use
  Company Number: 228097LEO

PATIENT
  Age: 57 Year
  Sex: Female

DRUGS (3)
  1. PICATO [Suspect]
     Active Substance: INGENOL MEBUTATE
     Indication: PRECANCEROUS SKIN LESION
     Dosage: (1 TIME DAILY X 2 DAYS), TOPICAL
     Route: 061
     Dates: start: 20140602, end: 20140604
  2. PROGESTERONE (PROGESTERONE) [Concomitant]
  3. ESTRADIOL (ESTRADIOL) (GEL) [Concomitant]
     Active Substance: ESTRADIOL

REACTIONS (8)
  - Photophobia [None]
  - Application site scab [None]
  - Drug administered at inappropriate site [None]
  - Drug dose omission [None]
  - Application site discharge [None]
  - Application site vesicles [None]
  - Application site pruritus [None]
  - Application site pain [None]

NARRATIVE: CASE EVENT DATE: 20140603
